FAERS Safety Report 4816219-1 (Version None)
Quarter: 2005Q4

REPORT INFORMATION
  Report Type: 
  Country: None (occurrence: None)
  Receive Date: 20051028
  Receipt Date: 20051018
  Transmission Date: 20060501
  Serious: Yes (Other)
  Sender: FDA-Public Use
  Company Number: 218743

PATIENT
  Age: 66 Year
  Sex: Female
  Weight: 71 kg

DRUGS (8)
  1. MABTHERA (RITUXIMAB) CONC FOR SOLUTION FOR INFUSION [Suspect]
     Indication: LYMPHOMA
     Dosage: 375 MG/M2, INTRAVENOUS
     Route: 042
     Dates: start: 20040721, end: 20041106
  2. CYCLOPHOSPHAMIDE [Concomitant]
  3. VINCRISTINE [Concomitant]
  4. PREDNISONE [Concomitant]
  5. DOXORUBICIN HCL [Concomitant]
  6. MORPHINE [Concomitant]
  7. LANSOPRAZOLE [Concomitant]
  8. SENNA (SENNA) [Concomitant]

REACTIONS (2)
  - NEUTROPENIA [None]
  - THERAPY NON-RESPONDER [None]
